FAERS Safety Report 9574663 (Version 2)
Quarter: 2013Q4

REPORT INFORMATION
  Report Type: Spontaneous
  Country: US (occurrence: US)
  Receive Date: 20131001
  Receipt Date: 20131001
  Transmission Date: 20140711
  Serious: No
  Sender: FDA-Public Use
  Company Number: US-PURDUE-USA-2012-0083345

PATIENT
  Age: 71 Year
  Sex: Male
  Weight: 93.42 kg

DRUGS (7)
  1. BUTRANS [Suspect]
     Indication: NECK PAIN
     Dosage: 5 MCG, Q1H
     Route: 062
     Dates: start: 20110926, end: 20110928
  2. PROSCAR [Concomitant]
     Indication: PROSTATOMEGALY
     Dosage: 5 MG, UNK
     Route: 048
     Dates: start: 20060612
  3. NEXIUM                             /01479302/ [Concomitant]
     Indication: REFLUX GASTRITIS
     Dosage: 40 MG, UNK
     Route: 048
     Dates: start: 20050913
  4. ZETIA [Concomitant]
     Indication: BLOOD CHOLESTEROL INCREASED
     Dosage: 10 MG, UNK
     Route: 048
     Dates: start: 20071106
  5. FLOMAX                             /00889901/ [Concomitant]
     Indication: URINARY RETENTION
     Dosage: 0.4 MG, DAILY
     Route: 048
     Dates: start: 20050505
  6. LOVAZA [Concomitant]
     Indication: BLOOD CHOLESTEROL INCREASED
     Dosage: 1 GRAM, 3 TIMES A WEEK
     Route: 048
     Dates: start: 20070707
  7. CARDURA [Concomitant]
     Indication: URINARY RETENTION
     Dosage: 2 MG, UNK
     Route: 048
     Dates: start: 20091104

REACTIONS (1)
  - Claustrophobia [Recovered/Resolved]
